FAERS Safety Report 5236095-5 (Version None)
Quarter: 2007Q1

REPORT INFORMATION
  Report Type: 
  Country: None (occurrence: None)
  Receive Date: 20061208
  Receipt Date: 20060504
  Transmission Date: 20070707
  Serious: Yes (Other)
  Sender: FDA-Public Use
  Company Number: 2006UW08719

PATIENT
  Age: 58 Year
  Sex: Female
  Weight: 86.182 kg

DRUGS (3)
  1. CRESTOR [Suspect]
     Indication: BLOOD CHOLESTEROL INCREASED
     Dates: start: 20051201, end: 20060401
  2. ATACAND HCT [Suspect]
     Indication: HYPERTENSION
     Dosage: 32-12.5 MG
     Dates: start: 20051201
  3. NEXIUM [Concomitant]

REACTIONS (2)
  - ALOPECIA [None]
  - CHAPPED LIPS [None]
